FAERS Safety Report 20918362 (Version 16)
Quarter: 2023Q4

REPORT INFORMATION
  Report Type: Other
  Country: CA (occurrence: None)
  Receive Date: 20220606
  Receipt Date: 20231121
  Transmission Date: 20240109
  Serious: No
  Sender: FDA-Public Use
  Company Number: CA-ROCHE-3108812

PATIENT
  Sex: Female

DRUGS (1)
  1. OCREVUS [Suspect]
     Active Substance: OCRELIZUMAB
     Indication: Relapsing-remitting multiple sclerosis
     Dosage: 300 MG AT DAY 0 AND 14, THEN 600 MG EVERY 6 MONTH
     Route: 042
     Dates: start: 20210329

REACTIONS (7)
  - Skin ulcer [Recovered/Resolved]
  - Fungal infection [Recovered/Resolved]
  - Burning sensation [Unknown]
  - Cystitis [Unknown]
  - Infection [Unknown]
  - White blood cell count increased [Unknown]
  - Off label use [Unknown]
